FAERS Safety Report 10947674 (Version 1)
Quarter: 2015Q1

REPORT INFORMATION
  Report Type: Spontaneous
  Country: US (occurrence: US)
  Receive Date: 20150323
  Receipt Date: 20150323
  Transmission Date: 20150721
  Serious: Yes (Hospitalization, Other)
  Sender: FDA-Public Use
  Company Number: US-AMGEN-USASP2015026087

PATIENT
  Age: 83 Year
  Sex: Male

DRUGS (2)
  1. ENBREL [Suspect]
     Active Substance: ETANERCEPT
     Indication: RHEUMATOID ARTHRITIS
     Dosage: 50 MG, QWK
     Route: 065
     Dates: start: 20010701
  2. METHOTREXATE [Concomitant]
     Active Substance: METHOTREXATE
     Dosage: 15 MG, UNK
     Route: 048

REACTIONS (9)
  - Muscular weakness [Unknown]
  - Cerumen impaction [Not Recovered/Not Resolved]
  - Wrong technique in drug usage process [Unknown]
  - Ill-defined disorder [Not Recovered/Not Resolved]
  - Back injury [Recovered/Resolved]
  - Dysstasia [Recovered/Resolved]
  - Fall [Recovered/Resolved]
  - Back pain [Unknown]
  - Intervertebral disc disorder [Unknown]

NARRATIVE: CASE EVENT DATE: 2012
